FAERS Safety Report 14530486 (Version 2)
Quarter: 2018Q2

REPORT INFORMATION
  Report Type: Other
  Country: CA (occurrence: CA)
  Receive Date: 20180214
  Receipt Date: 20180422
  Transmission Date: 20180711
  Serious: Yes (Hospitalization)
  Sender: FDA-Public Use
  Company Number: CA-APOTEX-2018AP006369

PATIENT
  Sex: Female

DRUGS (2)
  1. ACETAMINOPHEN HEADACHE ULTRA RELIEF [Suspect]
     Active Substance: ACETAMINOPHEN\CAFFEINE
     Indication: OVERDOSE
     Dosage: 12000 MG, UNK
     Route: 048
  2. ACETAMINOPHEN. [Suspect]
     Active Substance: ACETAMINOPHEN
     Indication: PRODUCT USED FOR UNKNOWN INDICATION
     Dosage: 500 MG, TOTAL
     Route: 065

REACTIONS (3)
  - Overdose [Unknown]
  - Exposure during pregnancy [Unknown]
  - Toxicity to various agents [Unknown]
